FAERS Safety Report 4913519-1 (Version None)
Quarter: 2006Q1

REPORT INFORMATION
  Report Type: 
  Country: None (occurrence: None)
  Receive Date: 20060216
  Receipt Date: 20060130
  Transmission Date: 20060701
  Serious: Yes (Other)
  Sender: FDA-Public Use
  Company Number: PHNR2006AU00507

PATIENT
  Sex: Male

DRUGS (5)
  1. TEGRETOL [Suspect]
     Dosage: 7.5 ML, TID
     Route: 048
  2. PHENOBARBITONE [Suspect]
     Dosage: 0.5 ML
  3. MELATONIN [Suspect]
     Indication: INSOMNIA
  4. ZOLADEX [Suspect]
     Indication: PRECOCIOUS PUBERTY
     Dosage: 10.8 MG, ONCE/SINGLE
     Dates: start: 20051101, end: 20051101
  5. ZOLADEX [Suspect]
     Dosage: 10.8 MG, ONCE/SINGLE
     Dates: start: 20060101, end: 20060101

REACTIONS (4)
  - DRUG INTERACTION [None]
  - OPISTHOTONUS [None]
  - PAIN [None]
  - SCREAMING [None]
